FAERS Safety Report 8828843 (Version 1)
Quarter: 2012Q4

REPORT INFORMATION
  Report Type: 
  Country: ZA (occurrence: ZA)
  Receive Date: 20121008
  Receipt Date: 20121008
  Transmission Date: 20130627
  Serious: Yes (Hospitalization)
  Sender: FDA-Public Use
  Company Number: ZA-ELI_LILLY_AND_COMPANY-ZA201209008322

PATIENT
  Sex: Female

DRUGS (3)
  1. HUMULIN 30% REGULAR, 70% NPH [Suspect]
     Indication: DIABETES MELLITUS
     Dosage: 25 u, each evening
     Route: 058
     Dates: start: 201112
  2. GLUCOMED [Concomitant]
     Indication: DIABETES MELLITUS
     Dosage: 1 DF, bid
     Route: 048
  3. GLIBENCLAMIDE [Concomitant]
     Indication: DIABETES MELLITUS
     Dosage: 2 DF, bid
     Route: 048

REACTIONS (1)
  - Bronchopneumonia [Unknown]
